FAERS Safety Report 14100368 (Version 5)
Quarter: 2017Q4

REPORT INFORMATION
  Report Type: Spontaneous
  Country: US (occurrence: US)
  Receive Date: 20171017
  Receipt Date: 20171218
  Transmission Date: 20180321
  Serious: Yes (Other)
  Sender: FDA-Public Use
  Company Number: US-ACTELION-A-NJ2017-161000

PATIENT
  Age: 44 Year
  Sex: Male
  Weight: 88.44 kg

DRUGS (3)
  1. TRACLEER [Suspect]
     Active Substance: BOSENTAN
     Indication: PULMONARY HYPERTENSION
     Dosage: 125 MG, BID
     Route: 048
  2. SILDENAFIL CITRATE. [Concomitant]
     Active Substance: SILDENAFIL CITRATE
  3. VELETRI [Suspect]
     Active Substance: EPOPROSTENOL
     Indication: PULMONARY HYPERTENSION
     Dosage: 55 NG/KG, PER MIN
     Route: 042

REACTIONS (9)
  - Vomiting [Unknown]
  - Interstitial lung disease [Unknown]
  - Abdominal discomfort [Unknown]
  - Joint crepitation [Unknown]
  - Nausea [Unknown]
  - Malaise [Recovered/Resolved]
  - Neck pain [Unknown]
  - Productive cough [Unknown]
  - Insomnia [Unknown]
